FAERS Safety Report 16376453 (Version 4)
Quarter: 2023Q2

REPORT INFORMATION
  Report Type: Other
  Country: CA (occurrence: None)
  Receive Date: 20190531
  Receipt Date: 20230627
  Transmission Date: 20230722
  Serious: Yes (Other)
  Sender: FDA-Public Use
  Company Number: CA-ROCHE-2258818

PATIENT
  Age: 55 Year
  Sex: Female

DRUGS (4)
  1. OCREVUS [Suspect]
     Active Substance: OCRELIZUMAB
     Indication: Primary progressive multiple sclerosis
     Dosage: 300 MG AT DAY 0 AND 14, THEN 600 MG EVERY 6 MONTHS.?SHE HAD SECOND INITIAL DOSE: 11/DEC/2018
     Route: 042
     Dates: start: 20181127
  2. RITALIN [Concomitant]
     Active Substance: METHYLPHENIDATE HYDROCHLORIDE
  3. OMEGA 3 [Concomitant]
     Active Substance: CAPSAICIN
  4. MODAFINIL [Concomitant]
     Active Substance: MODAFINIL

REACTIONS (13)
  - Memory impairment [Unknown]
  - Visual impairment [Unknown]
  - Mobility decreased [Unknown]
  - Gait disturbance [Unknown]
  - Cognitive disorder [Unknown]
  - Walking aid user [Unknown]
  - Rhinorrhoea [Not Recovered/Not Resolved]
  - Lethargy [Unknown]
  - Fall [Unknown]
  - Rhinorrhoea [Unknown]
  - Stress [Unknown]
  - Skin abrasion [Not Recovered/Not Resolved]
  - Ligament sprain [Recovering/Resolving]

NARRATIVE: CASE EVENT DATE: 20181201
